FAERS Safety Report 4335879-5 (Version None)
Quarter: 2004Q2

REPORT INFORMATION
  Report Type: 
  Country: None (occurrence: None)
  Receive Date: 20040405
  Receipt Date: 20040319
  Transmission Date: 20050107
  Serious: Yes (Death)
  Sender: FDA-Public Use
  Company Number: 205391

PATIENT
  Age: 22 Year
  Sex: Female

DRUGS (2)
  1. NUTROPIN [Suspect]
     Indication: GROWTH HORMONE DEFICIENCY
     Dates: start: 19800101, end: 19940101
  2. HUMAN PITUITARY GROWTH HORMONE (SOMATROPIN) [Suspect]

REACTIONS (7)
  - BLOOD CHOLESTEROL INCREASED [None]
  - CEREBELLAR ATROPHY [None]
  - CREUTZFELDT-JAKOB DISEASE [None]
  - ELECTROENCEPHALOGRAM ABNORMAL [None]
  - GLIOSIS [None]
  - NUCLEAR MAGNETIC RESONANCE IMAGING BRAIN ABNORMAL [None]
  - VITAMIN E INCREASED [None]
